FAERS Safety Report 6571944-X (Version None)
Quarter: 2010Q1

REPORT INFORMATION
  Report Type: 
  Country: None (occurrence: None)
  Receive Date: 20100205
  Receipt Date: 20100126
  Transmission Date: 20100710
  Serious: Yes (Death, Hospitalization)
  Sender: FDA-Public Use
  Company Number: CA-WYE-G04744009

PATIENT
  Age: 67 Year
  Sex: Male
  Weight: 91 kg

DRUGS (15)
  1. SIROLIMUS [Suspect]
     Indication: PROPHYLAXIS AGAINST TRANSPLANT REJECTION
     Dosage: UNKNOWN
     Route: 048
     Dates: start: 20080311, end: 20080515
  2. MYCOPHENOLATE MOFETIL [Suspect]
     Indication: IMMUNOSUPPRESSION
     Dosage: 2 G EVERY
     Route: 048
     Dates: start: 20090710, end: 20091014
  3. PREDNISONE [Suspect]
     Indication: IMMUNOSUPPRESSION
     Dosage: 7.5 MG EVERY
     Route: 048
     Dates: start: 20090517, end: 20091014
  4. ATORVASTATIN [Concomitant]
     Indication: DYSLIPIDAEMIA
     Dosage: 10 MG EVERY
     Route: 048
     Dates: start: 20070101, end: 20091014
  5. AMLODIPINE [Concomitant]
     Indication: HYPERTENSION
     Dosage: 10 MG EVERY
     Route: 048
     Dates: start: 20080411, end: 20091013
  6. CANDESARTAN CILEXETIL [Concomitant]
     Indication: HYPERTENSION
     Dosage: 8 MG EVERY
     Route: 048
     Dates: start: 20090516, end: 20091013
  7. CALCIUM CARBONATE/CALCIUM GLUCONATE/CALCIUM LACTATE/ERGOCALCIFEROL [Concomitant]
     Indication: HYPERCALCAEMIA
     Dosage: 30 MG EVERY
     Route: 048
     Dates: start: 20090701, end: 20091014
  8. INSULIN HUMAN [Concomitant]
     Indication: TYPE 2 DIABETES MELLITUS
     Dosage: 42 UNIT EVERY
     Route: 058
     Dates: start: 20060506, end: 20091014
  9. ISOPHANE INSULIN [Concomitant]
     Indication: TYPE 2 DIABETES MELLITUS
     Dosage: 22 UNIT EVERY
     Route: 058
     Dates: start: 20070731, end: 20091014
  10. RISEDRONATE SODIUM [Concomitant]
     Indication: PROPHYLAXIS
     Route: 048
     Dates: start: 20070731, end: 20091014
  11. PAROXETINE HYDROCHLORIDE [Concomitant]
     Indication: ANXIETY
     Dosage: 10 MG EVERY
     Route: 048
     Dates: start: 20070101, end: 20091014
  12. ACETYLSALICYLIC ACID [Concomitant]
     Dosage: 80 MG EVERY
     Route: 048
     Dates: start: 19930101, end: 20091014
  13. TACROLIMUS [Suspect]
     Indication: PROPHYLAXIS AGAINST TRANSPLANT REJECTION
     Dosage: UNKNOWN
     Route: 048
     Dates: start: 20080516
  14. TACROLIMUS [Suspect]
     Dosage: 3 MG EVERY
     Route: 048
     Dates: start: 20090806, end: 20091014
  15. LEVOTHYROXINE SODIUM [Concomitant]
     Indication: HYPOTHYROIDISM
     Dosage: .075 MG EVERY
     Route: 048
     Dates: start: 20070101, end: 20091014

REACTIONS (1)
  - PANCREATIC CARCINOMA [None]
